FAERS Safety Report 7164116-1 (Version None)
Quarter: 2010Q4

REPORT INFORMATION
  Report Type: 
  Country: None (occurrence: None)
  Receive Date: 20101123
  Receipt Date: 20100812
  Transmission Date: 20110411
  Serious: No
  Sender: FDA-Public Use
  Company Number: 015198

PATIENT
  Sex: Female
  Weight: 83.9 kg

DRUGS (3)
  1. CIMZIA [Suspect]
     Indication: COLITIS ULCERATIVE
     Dosage: (400 MG X/4 SUBCUTANEOUS)
     Route: 058
     Dates: start: 20100601
  2. ATENOLOL AND CHLORTHALIDONE [Concomitant]
  3. SIMVASTATIN [Concomitant]

REACTIONS (4)
  - FATIGUE [None]
  - INJECTION SITE ERYTHEMA [None]
  - INJECTION SITE PRURITUS [None]
  - INJECTION SITE RASH [None]
